FAERS Safety Report 5655748-8 (Version None)
Quarter: 2008Q1

REPORT INFORMATION
  Report Type: 
  Country: None (occurrence: None)
  Receive Date: 20080307
  Receipt Date: 20080227
  Transmission Date: 20080703
  Serious: Yes (Hospitalization)
  Sender: FDA-Public Use
  Company Number: SE-PFIZER INC-2008017597

PATIENT
  Sex: Male

DRUGS (4)
  1. XANOR [Suspect]
     Route: 048
     Dates: start: 20070529, end: 20070529
  2. CYMBALTA [Suspect]
     Route: 048
     Dates: start: 20070529, end: 20070529
  3. IMOVANE [Suspect]
     Route: 048
     Dates: start: 20070529, end: 20070529
  4. BUPRENORPHINE HCL [Concomitant]

REACTIONS (3)
  - APATHY [None]
  - POISONING [None]
  - SUICIDE ATTEMPT [None]
